FAERS Safety Report 6011020-8 (Version None)
Quarter: 2008Q4

REPORT INFORMATION
  Report Type: 
  Country: None (occurrence: None)
  Receive Date: 20081218
  Receipt Date: 20081118
  Transmission Date: 20090506
  Serious: Yes (Other)
  Sender: FDA-Public Use
  Company Number: US-PFIZER INC-2008085441

PATIENT
  Sex: Male
  Weight: 104.31 kg

DRUGS (8)
  1. LYRICA [Suspect]
     Indication: PAIN
     Route: 048
     Dates: start: 20081001, end: 20081003
  2. LYRICA [Suspect]
     Indication: LUMBAR RADICULOPATHY
  3. LYRICA [Suspect]
     Indication: SLEEP DISORDER
  4. IBUPROFEN [Suspect]
     Indication: HEADACHE
     Dates: start: 20030101
  5. ULTRAM [Suspect]
     Indication: PAIN
     Dosage: 100 MG, 1X/DAY
     Route: 048
     Dates: start: 20081001, end: 20081003
  6. MARIJUANA [Concomitant]
  7. PERCOCET [Concomitant]
     Indication: PAIN
     Dosage: UNK
     Dates: start: 20050101
  8. LOTREL [Concomitant]
     Indication: HYPERTENSION

REACTIONS (12)
  - ABDOMINAL PAIN [None]
  - BACK PAIN [None]
  - DIARRHOEA [None]
  - DRUG HYPERSENSITIVITY [None]
  - DRUG INEFFECTIVE [None]
  - HYPOAESTHESIA [None]
  - INTERVERTEBRAL DISC PROTRUSION [None]
  - MUSCLE SPASMS [None]
  - PAIN [None]
  - ROAD TRAFFIC ACCIDENT [None]
  - SPINAL FRACTURE [None]
  - SWOLLEN TONGUE [None]
